FAERS Safety Report 7540973-1 (Version None)
Quarter: 2011Q2

REPORT INFORMATION
  Report Type: 
  Country: None (occurrence: None)
  Receive Date: 20110610
  Receipt Date: 20110607
  Transmission Date: 20111010
  Serious: Yes (Hospitalization)
  Sender: FDA-Public Use
  Company Number: FR-PFIZER INC-2011118072

PATIENT
  Age: 25 Year
  Sex: Female

DRUGS (2)
  1. SOLU-MEDROL [Suspect]
     Dosage: 60 MG, UNK
     Route: 042
     Dates: start: 20110511, end: 20110515
  2. NEXIUM [Suspect]
     Dosage: 20 MG, 1X/DAY
     Route: 042
     Dates: start: 20110511, end: 20110515

REACTIONS (1)
  - THROMBOCYTOPENIA [None]
